FAERS Safety Report 23254197 (Version 1)
Quarter: 2023Q4

REPORT INFORMATION
  Report Type: Spontaneous
  Country: GB (occurrence: GB)
  Receive Date: 20231202
  Receipt Date: 20231202
  Transmission Date: 20240109
  Serious: Yes (Hospitalization, Other)
  Sender: FDA-Public Use
  Company Number: GB-Accord-374017

PATIENT
  Age: 63 Year
  Sex: Female

DRUGS (11)
  1. CLONAZEPAM [Suspect]
     Active Substance: CLONAZEPAM
     Indication: Product used for unknown indication
     Dosage: 1MG AT NIGHT
     Route: 048
     Dates: start: 2022
  2. METHADONE [Suspect]
     Active Substance: METHADONE HYDROCHLORIDE
     Indication: Cancer pain
     Dosage: 10MG/ML ORAL SOLUTION CONCENTRATE
     Route: 048
  3. FENTANYL [Suspect]
     Active Substance: FENTANYL\FENTANYL CITRATE
     Indication: Cancer pain
     Route: 060
     Dates: start: 202205, end: 2022
  4. ACETAMINOPHEN [Suspect]
     Active Substance: ACETAMINOPHEN
     Indication: Cancer pain
     Route: 054
  5. OXYCODONE HYDROCHLORIDE [Suspect]
     Active Substance: OXYCODONE HYDROCHLORIDE
     Indication: Cancer pain
     Dosage: 5MG/5ML ORAL SOLUTION, DOSE: 15MG 2 HOURLY, 6 DOSES IN 24 HOURS
     Route: 048
     Dates: start: 202205, end: 2022
  6. MORPHINE [Suspect]
     Active Substance: MORPHINE
     Indication: Cancer pain
     Route: 048
  7. LORAZEPAM [Suspect]
     Active Substance: LORAZEPAM
     Indication: Product used for unknown indication
     Dosage: 1MG THREE TIMES A DAY
     Route: 060
     Dates: start: 2022
  8. LANREOTIDE ACETATE [Concomitant]
     Active Substance: LANREOTIDE ACETATE
  9. METHADONE [Suspect]
     Active Substance: METHADONE HYDROCHLORIDE
     Indication: Cancer pain
     Dosage: DOSE: 10MG BUCCALLY 3 HOURLY WHEN REQUIRED, MAXIMUM OF 8 DOSES IN 24 HOURS
     Route: 002
  10. METHADONE [Suspect]
     Active Substance: METHADONE HYDROCHLORIDE
     Indication: Cancer pain
     Dosage: 25MG TWICE DAILY
     Route: 002
  11. FENTANYL [Suspect]
     Active Substance: FENTANYL\FENTANYL CITRATE
     Indication: Cancer pain
     Dosage: 125 UG/ HOUR EVERY 72 HOURS
     Route: 062
     Dates: start: 202205, end: 2022

REACTIONS (6)
  - Off label use [Unknown]
  - Somnolence [Recovering/Resolving]
  - Confusional state [Recovering/Resolving]
  - Product taste abnormal [Unknown]
  - Toxicity to various agents [Recovering/Resolving]
  - Myoclonus [Recovering/Resolving]

NARRATIVE: CASE EVENT DATE: 20220101
